FAERS Safety Report 10549535 (Version 1)
Quarter: 2014Q4

REPORT INFORMATION
  Report Type: Spontaneous
  Country: US (occurrence: US)
  Receive Date: 20141028
  Receipt Date: 20141028
  Transmission Date: 20150529
  Serious: Yes (Hospitalization, Other)
  Sender: FDA-Public Use
  Company Number: US-ACTAVIS-2014-22920

PATIENT
  Age: 67 Year
  Sex: Male

DRUGS (2)
  1. PACLITAXEL (ATLLC) [Suspect]
     Active Substance: PACLITAXEL
     Indication: SQUAMOUS CELL CARCINOMA OF LUNG
     Dosage: UNK
     Route: 065
  2. CARBOPLATIN (WATSON LABORATORIES) [Suspect]
     Active Substance: CARBOPLATIN
     Indication: SQUAMOUS CELL CARCINOMA OF LUNG
     Dosage: UNK
     Route: 065

REACTIONS (4)
  - Sepsis [Unknown]
  - Condition aggravated [Recovered/Resolved]
  - Inflammation [Recovered/Resolved]
  - Actinic keratosis [Recovered/Resolved]
